FAERS Safety Report 5050403-X (Version None)
Quarter: 2006Q3

REPORT INFORMATION
  Report Type: 
  Country: None (occurrence: None)
  Receive Date: 20060707
  Receipt Date: 20060704
  Transmission Date: 20061208
  Serious: Yes (Hospitalization)
  Sender: FDA-Public Use
  Company Number: 200610411BNE

PATIENT
  Age: 61 Year
  Sex: Male

DRUGS (8)
  1. SORAFENIB [Suspect]
     Indication: RENAL CELL CARCINOMA STAGE UNSPECIFIED
     Dosage: SEE IMAGE, ORAL
     Route: 048
     Dates: start: 20050603, end: 20050615
  2. SORAFENIB [Suspect]
     Indication: RENAL CELL CARCINOMA STAGE UNSPECIFIED
     Dosage: SEE IMAGE, ORAL
     Route: 048
     Dates: start: 20050628
  3. ATENOLOL [Concomitant]
  4. BENDROFLUAZIDE [Concomitant]
  5. VENLAFAXINE HCL [Concomitant]
  6. AMOXICILLIN [Concomitant]
  7. CETIRIZINE [Concomitant]
  8. ACYCLOVIR [Concomitant]

REACTIONS (3)
  - LETHARGY [None]
  - RASH [None]
  - RENAL FAILURE [None]
